FAERS Safety Report 9838399 (Version 2)
Quarter: 2014Q1

REPORT INFORMATION
  Report Type: Spontaneous
  Country: US (occurrence: US)
  Receive Date: 20140123
  Receipt Date: 20140123
  Transmission Date: 20141002
  Serious: No
  Sender: FDA-Public Use
  Company Number: US-GILEAD-2011-0046065

PATIENT
  Age: 15 Year
  Sex: Male
  Weight: 60.5 kg

DRUGS (11)
  1. CAYSTON [Suspect]
     Indication: PRODUCT USED FOR UNKNOWN INDICATION
     Dosage: 75 MG, TID
     Route: 055
     Dates: start: 20111027
  2. ALBUTEROL                          /00139501/ [Concomitant]
  3. ACIDOPHILUS [Concomitant]
  4. ASPIRIN [Concomitant]
  5. CLARITIN                           /00917501/ [Concomitant]
  6. CREON [Concomitant]
  7. DICYCLOMINE                        /00068601/ [Concomitant]
  8. NASONEX [Concomitant]
  9. NEXIUM                             /01479302/ [Concomitant]
  10. VITAMIN D NOS [Concomitant]
  11. ZITHROMAX [Concomitant]

REACTIONS (3)
  - Dizziness [Recovered/Resolved]
  - Paraesthesia [Recovered/Resolved]
  - Cough [Not Recovered/Not Resolved]
